FAERS Safety Report 7574936-7 (Version None)
Quarter: 2011Q2

REPORT INFORMATION
  Report Type: 
  Country: None (occurrence: None)
  Receive Date: 20110627
  Receipt Date: 20110614
  Transmission Date: 20111010
  Serious: Yes (Hospitalization)
  Sender: FDA-Public Use
  Company Number: JP-ELI_LILLY_AND_COMPANY-JP201105008208

PATIENT
  Sex: Female

DRUGS (11)
  1. METHYCOBAL [Concomitant]
     Dosage: 500 UG, TID
     Route: 048
  2. OPALMON [Concomitant]
     Dosage: 5 UG, TID
     Route: 048
  3. FOLIC ACID [Concomitant]
     Dosage: 5 MG, WEEKLY (1/W)
     Route: 048
  4. LOXONIN [Concomitant]
     Dosage: 60 MG, TID
     Route: 048
  5. RHEUMATREX [Concomitant]
     Dosage: 2 MG, BID
     Route: 048
  6. BONALON [Concomitant]
     Dosage: 35 MG, QD
     Route: 048
     Dates: start: 20100323
  7. GASMOTIN [Concomitant]
     Dosage: 5 MG, TID
     Route: 048
  8. ZOLPIDEM [Concomitant]
     Dosage: 5 MG, QD
     Route: 048
  9. PREDNISOLONE [Concomitant]
     Dosage: 12.5 MG, QD
     Route: 048
  10. SELBEX [Concomitant]
     Dosage: 50 MG, TID
     Route: 048
  11. FORTEO [Suspect]
     Indication: OSTEOPOROSIS
     Dosage: 20 UG, QD
     Route: 058
     Dates: start: 20110424, end: 20110531

REACTIONS (1)
  - GASTROINTESTINAL PERFORATION [None]
